FAERS Safety Report 17151089 (Version 1)
Quarter: 2019Q4

REPORT INFORMATION
  Report Type: Spontaneous
  Country: US (occurrence: US)
  Receive Date: 20191212
  Receipt Date: 20191212
  Transmission Date: 20200122
  Serious: Yes (Other)
  Sender: FDA-Public Use
  Company Number: None

PATIENT

DRUGS (1)
  1. PHYTONADIONE SYRINGE [Suspect]
     Active Substance: PHYTONADIONE
     Indication: VITAMIN K
     Route: 058
     Dates: start: 20191212, end: 20191212

REACTIONS (3)
  - Product quality issue [None]
  - Device malfunction [None]
  - Injury associated with device [None]

NARRATIVE: CASE EVENT DATE: 20191212
